FAERS Safety Report 10168380 (Version 2)
Quarter: 2014Q2

REPORT INFORMATION
  Report Type: Spontaneous
  Country: TR (occurrence: TR)
  Receive Date: 20140513
  Receipt Date: 20140619
  Transmission Date: 20141212
  Serious: Yes (Other)
  Sender: FDA-Public Use
  Company Number: TR-AMGEN INC.-TURSP2014034511

PATIENT
  Age: 14 Year
  Sex: Female

DRUGS (3)
  1. ENBREL [Suspect]
     Indication: JUVENILE IDIOPATHIC ARTHRITIS
     Dosage: 50 MG, MONTHLY
     Route: 058
     Dates: start: 201111
  2. METHOTREXATE SODIUM [Concomitant]
     Dosage: UNKNOWN DOSE, WEEKLY
  3. DELTA-CORTRIL [Concomitant]
     Dosage: 3X1 DAILY

REACTIONS (4)
  - Abasia [Recovering/Resolving]
  - Arthralgia [Recovering/Resolving]
  - Peripheral swelling [Not Recovered/Not Resolved]
  - Joint swelling [Not Recovered/Not Resolved]
